FAERS Safety Report 15459253 (Version 2)
Quarter: 2019Q4

REPORT INFORMATION
  Report Type: Spontaneous
  Country: CZ (occurrence: CZ)
  Receive Date: 20181003
  Receipt Date: 20191204
  Transmission Date: 20200122
  Serious: Yes (Death, Life-Threatening, Hospitalization, Other)
  Sender: FDA-Public Use
  Company Number: CZ-LUPIN PHARMACEUTICALS INC.-2018-06779

PATIENT
  Age: 25 Year
  Sex: Male

DRUGS (2)
  1. ESCITALOPRAM [Suspect]
     Active Substance: ESCITALOPRAM OXALATE
     Indication: DEPRESSION
     Dosage: 250 MG, UNK
     Route: 048
  2. ESCITALOPRAM [Suspect]
     Active Substance: ESCITALOPRAM OXALATE
     Indication: SUICIDE ATTEMPT

REACTIONS (21)
  - Brain death [Fatal]
  - Ventricular hypokinesia [Unknown]
  - Loss of consciousness [Unknown]
  - Hypokinesia [Recovered/Resolved]
  - Right ventricular dysfunction [Recovered/Resolved]
  - Peripheral ischaemia [Recovered/Resolved]
  - Ventricular fibrillation [Recovered/Resolved]
  - Left ventricular dysfunction [Recovered/Resolved]
  - Toxicity to various agents [Not Recovered/Not Resolved]
  - Serotonin syndrome [Not Recovered/Not Resolved]
  - Right ventricular dilatation [Recovered/Resolved]
  - Ventricular tachycardia [Recovered/Resolved]
  - Peripheral artery occlusion [Recovered/Resolved]
  - Electrocardiogram QRS complex prolonged [Recovered/Resolved]
  - Intentional overdose [Unknown]
  - Coma [Not Recovered/Not Resolved]
  - Ejection fraction decreased [Recovered/Resolved]
  - Cardiac fibrillation [Recovered/Resolved]
  - Electrocardiogram QRS complex [Unknown]
  - Distributive shock [Recovered/Resolved]
  - Bradycardia [Recovered/Resolved]
